FAERS Safety Report 12088514 (Version 1)
Quarter: 2016Q1

REPORT INFORMATION
  Report Type: Report from Study
  Country: US (occurrence: US)
  Receive Date: 20160218
  Receipt Date: 20160218
  Transmission Date: 20160526
  Serious: Yes (Other)
  Sender: FDA-Public Use
  Company Number: US-AMGEN-USASL2016018952

PATIENT
  Sex: Female

DRUGS (3)
  1. ENBREL [Suspect]
     Active Substance: ETANERCEPT
     Indication: PSORIATIC ARTHROPATHY
     Dosage: UNK
     Route: 065
  2. ENBREL [Suspect]
     Active Substance: ETANERCEPT
     Dosage: UNK, 2 TIMES/WK
     Route: 065
     Dates: start: 20151217
  3. POTASSIUM [Concomitant]
     Active Substance: POTASSIUM
     Dosage: UNK
     Dates: start: 2016

REACTIONS (12)
  - Pain [Not Recovered/Not Resolved]
  - Mobility decreased [Unknown]
  - Skin discolouration [Unknown]
  - Arthralgia [Unknown]
  - Psoriatic arthropathy [Not Recovered/Not Resolved]
  - Pallor [Unknown]
  - Lymphadenopathy [Unknown]
  - Joint swelling [Unknown]
  - Dry skin [Unknown]
  - Muscle spasms [Unknown]
  - Skin exfoliation [Unknown]
  - Rash erythematous [Unknown]

NARRATIVE: CASE EVENT DATE: 2016
